FAERS Safety Report 8921310 (Version 1)
Quarter: 2012Q4

REPORT INFORMATION
  Report Type: 
  Country: US (occurrence: US)
  Receive Date: 20121122
  Receipt Date: 20121122
  Transmission Date: 20130627
  Serious: Yes (Other)
  Sender: FDA-Public Use
  Company Number: US-BRISTOL-MYERS SQUIBB COMPANY-17127051

PATIENT
  Age: 64 Year
  Sex: Female

DRUGS (1)
  1. ORENCIA [Suspect]
     Dosage: Last Infusion:   08NOV2012
     Route: 042

REACTIONS (2)
  - Fall [Unknown]
  - Upper limb fracture [Unknown]
